FAERS Safety Report 6279828-1 (Version None)
Quarter: 2009Q3

REPORT INFORMATION
  Report Type: 
  Country: None (occurrence: None)
  Receive Date: 20090723
  Receipt Date: 20090710
  Transmission Date: 20100115
  Serious: Yes (Other)
  Sender: FDA-Public Use
  Company Number: PHHY2009NO28806

PATIENT
  Sex: Male

DRUGS (3)
  1. LESCOL [Suspect]
     Indication: CARDIOVASCULAR EVENT PROPHYLAXIS
     Dosage: 40 MG, JUST TAKEN ON TWO OCCASIONS
     Route: 048
     Dates: start: 20090501, end: 20090601
  2. CORDARONE [Interacting]
     Indication: ATRIAL FIBRILLATION
     Dosage: 200 MG, BID
     Route: 048
     Dates: start: 20090501
  3. CORDARONE [Interacting]
     Dosage: 200 MG, QD
     Route: 048

REACTIONS (1)
  - ATRIAL FIBRILLATION [None]
